FAERS Safety Report 4677649-4 (Version None)
Quarter: 2005Q2

REPORT INFORMATION
  Report Type: 
  Country: None (occurrence: None)
  Receive Date: 20050527
  Receipt Date: 20050527
  Transmission Date: 20051028
  Serious: No
  Sender: FDA-Public Use
  Company Number: None

PATIENT
  Sex: Female
  Weight: 104.5 kg

DRUGS (3)
  1. IRINOTECAN [Suspect]
     Indication: COLON CANCER
     Dosage: 180 MG/M2 IV OVER 120 MINUTES ON DAY 1, EVERY 2 WEEKS X 12 CYCLES
     Route: 042
     Dates: start: 20050118
  2. LEUCOVORIN [Suspect]
     Dosage: 400 MG/M2 IV OVER 120 MINUTES ON DAY 1, EVERY 2 WEEKS X 12 CYCLES
     Route: 042
  3. FLUOROURACIL [Suspect]
     Dosage: 400 MG/M2 IV PUSH ON DAY 1 FOLLOWED BY 2400 MG/M2 CIV OVER 46-48 HOURS, EVERY 2 WEEKS
     Route: 042

REACTIONS (3)
  - DRUG TOXICITY [None]
  - MUSCULOSKELETAL STIFFNESS [None]
  - NECK PAIN [None]
